FAERS Safety Report 7892787-0 (Version None)
Quarter: 2011Q4

REPORT INFORMATION
  Report Type: 
  Country: None (occurrence: None)
  Receive Date: 20111104
  Receipt Date: 20111030
  Transmission Date: 20120403
  Serious: Yes (Life-Threatening)
  Sender: FDA-Public Use
  Company Number: NZ-B.I. PHARMACEUTICALS,INC./RIDGEFIELD-2011-AU-02012AU

PATIENT
  Age: 8 Decade
  Sex: Male

DRUGS (5)
  1. ATENOLOL [Concomitant]
  2. CANDESARTAN CILEXETIL [Concomitant]
  3. METFORMIN HCL [Concomitant]
  4. ATORVASTATIN [Concomitant]
  5. PRADAXA [Suspect]

REACTIONS (1)
  - MYOCARDIAL INFARCTION [None]
